FAERS Safety Report 11851884 (Version 1)
Quarter: 2015Q4

REPORT INFORMATION
  Report Type: Spontaneous
  Country: US (occurrence: US)
  Receive Date: 20151218
  Receipt Date: 20151218
  Transmission Date: 20160305
  Serious: Yes (Death)
  Sender: FDA-Public Use
  Company Number: US-BAYER-2015-485622

PATIENT
  Age: 83 Year
  Sex: Male

DRUGS (5)
  1. ALKA-SELTZER PLUS COLD FORMULA DAY/NIGHT EFFERVESCENT COMBI NIGHT [Suspect]
     Active Substance: ASPIRIN\CHLORPHENIRAMINE MALEATE\PHENYLPROPANOLAMINE
     Indication: ABDOMINAL DISCOMFORT
  2. ALKA-SELTZER PLUS DAY NON DROWSY COLD MEDICINE CITRUS [Suspect]
     Active Substance: ASPIRIN\DEXTROMETHORPHAN HYDROBROMIDE\PHENYLEPHRINE BITARTRATE
     Indication: MALAISE
  3. MULTIVITAMIN [Concomitant]
     Active Substance: VITAMINS
  4. ALKA-SELTZER PLUS COLD FORMULA DAY/NIGHT EFFERVESCENT COMBI NIGHT [Suspect]
     Active Substance: ASPIRIN\CHLORPHENIRAMINE MALEATE\PHENYLPROPANOLAMINE
     Indication: MALAISE
  5. ALKA-SELTZER PLUS DAY NON DROWSY COLD MEDICINE CITRUS [Suspect]
     Active Substance: ASPIRIN\DEXTROMETHORPHAN HYDROBROMIDE\PHENYLEPHRINE BITARTRATE
     Indication: ABDOMINAL DISCOMFORT

REACTIONS (2)
  - Product use issue [None]
  - Death [Fatal]
